FAERS Safety Report 6664613-9 (Version None)
Quarter: 2010Q1

REPORT INFORMATION
  Report Type: 
  Country: None (occurrence: None)
  Receive Date: 20100330
  Receipt Date: 20091127
  Transmission Date: 20100710
  Serious: Yes (Other)
  Sender: FDA-Public Use
  Company Number: 6056128

PATIENT
  Age: 84 Year
  Sex: Female

DRUGS (3)
  1. LEVOTHYROX 50 (50 MICROGRAM, TABLET) (LEVOTHYROXINE SODIUM), 102551 [Suspect]
     Indication: HYPOTHYROIDISM
     Dosage: 1 DOSAGE FORMS
     Route: 048
     Dates: end: 20091112
  2. PIRACETAM(800 MG) (PIRACETAM) [Concomitant]
  3. ATACAND (16 MG) (CANDESARTAN CILEXETIL) [Concomitant]

REACTIONS (4)
  - ANGINA PECTORIS [None]
  - DYSPNOEA [None]
  - MALAISE [None]
  - MUSCULAR WEAKNESS [None]
